FAERS Safety Report 9829176 (Version 2)
Quarter: 2014Q3

REPORT INFORMATION
  Report Type: Spontaneous
  Country: US (occurrence: US)
  Receive Date: 20140119
  Receipt Date: 20140710
  Transmission Date: 20150326
  Serious: Yes (Hospitalization, Other)
  Sender: FDA-Public Use
  Company Number: US-009507513-1401USA004982

PATIENT
  Sex: Female
  Weight: 89.34 kg

DRUGS (8)
  1. PRENATAL MULTIVITAMINS [Concomitant]
     Dosage: UNK, QD
     Route: 048
  2. TRIPHASIL-28 [Concomitant]
     Dosage: UNK, QD
     Route: 048
  3. [COMPOSITION UNSPECIFIED] [Concomitant]
     Active Substance: UNSPECIFIED INGREDIENT
  4. NUVARING [Suspect]
     Active Substance: ETHINYL ESTRADIOL\ETONOGESTREL
     Indication: CONTRACEPTION
     Dosage: UNK
     Route: 067
     Dates: start: 20120215, end: 20120703
  5. VICKS NYQUIL D [Concomitant]
  6. VICKS DAYQUIL (OLD FORMULA) [Concomitant]
  7. TYLENOL COLD MULTI-SYMPTOM DAYTIME [Concomitant]
     Active Substance: ACETAMINOPHEN\DEXTROMETHORPHAN HYDROBROMIDE\PHENYLEPHRINE HYDROCHLORIDE
     Dosage: UNK, Q4H
     Route: 048
  8. TYLENOL DAYTIME NON-DROWSY COUGH AND SORE THROAT WITH COOL BURST [Concomitant]
     Dosage: UNK, Q6H
     Route: 048

REACTIONS (8)
  - Head injury [Unknown]
  - Nasopharyngitis [Unknown]
  - Anxiety [Unknown]
  - Pulmonary embolism [Unknown]
  - Unintended pregnancy [Unknown]
  - Abortion induced [Recovered/Resolved]
  - Deep vein thrombosis [Unknown]
  - Syncope [Unknown]

NARRATIVE: CASE EVENT DATE: 2012
